FAERS Safety Report 23054637 (Version 3)
Quarter: 2023Q4

REPORT INFORMATION
  Report Type: Spontaneous
  Country: US (occurrence: US)
  Receive Date: 20231011
  Receipt Date: 20231108
  Transmission Date: 20240110
  Serious: Yes (Other)
  Sender: FDA-Public Use
  Company Number: US-SA-SAC20231009000209

PATIENT
  Age: 75 Year
  Sex: Female

DRUGS (5)
  1. DUPIXENT [Suspect]
     Active Substance: DUPILUMAB
     Indication: Dermatitis allergic
     Dosage: 300 MG, QOW
     Route: 058
     Dates: start: 202304, end: 2023
  2. ADBRY [Concomitant]
     Active Substance: TRALOKINUMAB-LDRM
     Dosage: 600 MG, 1X
     Route: 058
  3. ELIDEL [Concomitant]
     Active Substance: PIMECROLIMUS
  4. EUCRISA [Concomitant]
     Active Substance: CRISABOROLE
  5. PROTOPIC [Concomitant]
     Active Substance: TACROLIMUS

REACTIONS (14)
  - Uveitis [Unknown]
  - Eye disorder [Unknown]
  - Eczema [Unknown]
  - Rash erythematous [Unknown]
  - Dry skin [Unknown]
  - Actinic keratosis [Unknown]
  - Dermatitis [Unknown]
  - Seborrhoeic keratosis [Unknown]
  - Haemangioma of skin [Unknown]
  - Neurodermatitis [Unknown]
  - Skin irritation [Unknown]
  - Dry eye [Unknown]
  - Eye irritation [Unknown]
  - Condition aggravated [Unknown]

NARRATIVE: CASE EVENT DATE: 20230101
